FAERS Safety Report 7115671-9 (Version None)
Quarter: 2010Q4

REPORT INFORMATION
  Report Type: 
  Country: None (occurrence: None)
  Receive Date: 20101122
  Receipt Date: 20101109
  Transmission Date: 20110411
  Serious: Yes (Other)
  Sender: FDA-Public Use
  Company Number: PHHY2010US69210

PATIENT
  Sex: Female

DRUGS (1)
  1. MYFORTIC [Suspect]
     Indication: RENAL FAILURE CHRONIC
     Dosage: 720 MG, BID
     Route: 048
     Dates: start: 20100819

REACTIONS (2)
  - ABDOMINAL DISCOMFORT [None]
  - GALLBLADDER DISORDER [None]
